FAERS Safety Report 9454521 (Version 2)
Quarter: 2013Q3

REPORT INFORMATION
  Report Type: Spontaneous
  Country: JP (occurrence: JP)
  Receive Date: 20130812
  Receipt Date: 20130909
  Transmission Date: 20140515
  Serious: Yes (Other)
  Sender: FDA-Public Use
  Company Number: JP-GLAXOSMITHKLINE-B0897955A

PATIENT
  Age: 58 Year
  Sex: Male

DRUGS (7)
  1. PAXIL [Suspect]
     Indication: DEPRESSION
     Dosage: 20MG PER DAY
     Route: 048
     Dates: start: 20120423, end: 20130515
  2. PAXIL [Suspect]
     Indication: DEPRESSION
     Dosage: 10MG PER DAY
     Route: 048
     Dates: start: 20130516, end: 20130602
  3. PAXIL [Suspect]
     Indication: DEPRESSION
     Dosage: 5MG PER DAY
     Route: 048
     Dates: start: 20130603, end: 20130630
  4. DOGMATYL [Concomitant]
     Dosage: 50MG THREE TIMES PER DAY
     Route: 048
  5. DIAZEPAM [Concomitant]
     Dosage: 5MG THREE TIMES PER DAY
     Route: 048
  6. DEPAS [Concomitant]
     Indication: INSOMNIA
     Dosage: 1MG TWICE PER DAY
     Route: 048
     Dates: start: 20030620
  7. QUAZEPAM [Concomitant]
     Indication: INSOMNIA
     Route: 048
     Dates: start: 20060322

REACTIONS (3)
  - Depressed level of consciousness [Recovered/Resolved]
  - Carotid bruit [Recovered/Resolved]
  - Dizziness [Recovered/Resolved]
